FAERS Safety Report 7522476-3 (Version None)
Quarter: 2011Q2

REPORT INFORMATION
  Report Type: 
  Country: None (occurrence: None)
  Receive Date: 20110603
  Receipt Date: 20110524
  Transmission Date: 20111010
  Serious: Yes (Other)
  Sender: FDA-Public Use
  Company Number: AT-ROCHE-779689

PATIENT
  Age: 61 Year

DRUGS (7)
  1. CAPECITABINE [Suspect]
     Indication: COLON CANCER METASTATIC
     Route: 065
  2. FLUOROURACIL [Concomitant]
     Indication: COLON CANCER METASTATIC
  3. BEVACIZUMAB [Suspect]
     Dosage: WITH CAPECITABINE FOR 25 MONTHS
     Route: 065
  4. OXALIPLATIN [Concomitant]
     Indication: COLON CANCER METASTATIC
     Dosage: 9 CYCLES
  5. LEUCOVORIN CALCIUM [Concomitant]
     Indication: COLON CANCER METASTATIC
  6. IRINOTECAN HYDROCHLORIDE [Concomitant]
     Indication: COLON CANCER METASTATIC
  7. BEVACIZUMAB [Suspect]
     Indication: COLON CANCER METASTATIC
     Dosage: 12 CYCLES IN COMBINATION WITH FOLFOX
     Route: 065

REACTIONS (2)
  - PROTEINURIA [None]
  - PALMAR-PLANTAR ERYTHRODYSAESTHESIA SYNDROME [None]
